FAERS Safety Report 17809198 (Version 1)
Quarter: 2020Q2

REPORT INFORMATION
  Report Type: Spontaneous
  Country: GB (occurrence: GB)
  Receive Date: 20200520
  Receipt Date: 20200520
  Transmission Date: 20200714
  Serious: Yes (Death, Other)
  Sender: FDA-Public Use
  Company Number: GB-SA-2018SA120088

PATIENT
  Age: 60 Year
  Sex: Female
  Weight: 40 kg

DRUGS (61)
  1. LASIX [Suspect]
     Active Substance: FUROSEMIDE
     Indication: CARDIAC FAILURE
     Dosage: 1 DF, QD
     Route: 048
  2. FRAGMIN P [Suspect]
     Active Substance: DALTEPARIN SODIUM
     Indication: THROMBOSIS PROPHYLAXIS
     Dosage: 1 DF,QD
     Route: 058
     Dates: start: 19980818
  3. DILATREND [Suspect]
     Active Substance: CARVEDILOL
     Indication: HYPERTONIA
     Dosage: 6.25 MG, QD
     Route: 048
  4. POTASSIUM CHLORIDE. [Concomitant]
     Active Substance: POTASSIUM CHLORIDE
     Dosage: 1 DF,QD
     Route: 048
     Dates: start: 19980821, end: 19980821
  5. IRENAT [Concomitant]
     Active Substance: SODIUM PERCHLORATE
     Indication: HYPERTHYROIDISM
     Dosage: 20 DF, QD
     Route: 048
  6. ERYFER [FERROUS SULFATE] [Concomitant]
     Indication: ANAEMIA
     Dosage: 1 DF, QD
     Route: 048
  7. NOVALGIN (METAMIZOLE SODIUM) [Suspect]
     Active Substance: METAMIZOLE SODIUM
     Indication: PAIN
     Dosage: 20 DF,QD
     Route: 048
     Dates: start: 19980811, end: 19980811
  8. FUROSEMIDE. [Suspect]
     Active Substance: FUROSEMIDE
     Indication: CARDIAC FAILURE
     Dosage: 1 DF,QD
     Route: 048
     Dates: start: 19980406
  9. HEPARIN CALCIUM [Suspect]
     Active Substance: HEPARIN CALCIUM
     Indication: THROMBOSIS PROPHYLAXIS
     Dosage: 15000 IU,QD
     Route: 058
     Dates: start: 19980811, end: 19980818
  10. XANEF [ENALAPRIL MALEATE] [Suspect]
     Active Substance: ENALAPRIL MALEATE
     Dosage: 10 MG,QD
     Route: 048
     Dates: start: 19980818
  11. PARACETAMOL [Concomitant]
     Active Substance: ACETAMINOPHEN
     Indication: ANALGESIC THERAPY
     Dosage: 500 MG,QD
     Route: 048
     Dates: start: 19980826
  12. TAGAMET [Concomitant]
     Active Substance: CIMETIDINE
     Indication: PROPHYLAXIS AGAINST GASTROINTESTINAL ULCER
     Dosage: UNK UNK,UNK
     Route: 042
     Dates: start: 19980826, end: 19980826
  13. SOLU-DECORTIN-H [Concomitant]
     Active Substance: PREDNISOLONE SODIUM SUCCINATE
     Indication: ERYTHEMA
     Dosage: 100 MG,QD
     Route: 042
     Dates: start: 19980826, end: 19980826
  14. CARBIMAZOL [Concomitant]
     Active Substance: CARBIMAZOLE
     Dosage: 10 MG, QD
     Route: 048
  15. STEROFUNDIN [Concomitant]
     Active Substance: CALCIUM CHLORIDE\MAGNESIUM CHLORIDE\POTASSIUM CHLORIDE\SODIUM ACETATE\SODIUM CHLORIDE
     Indication: FLUID REPLACEMENT
     Dosage: 1000 ML, QD
     Route: 042
     Dates: start: 19980821, end: 19980828
  16. ZOCOR [Concomitant]
     Active Substance: SIMVASTATIN
     Indication: HYPERTONIA
     Dosage: 20 MG, QD
     Route: 048
     Dates: start: 19980803, end: 19980818
  17. ISOKET [Suspect]
     Active Substance: ISOSORBIDE DINITRATE
     Indication: HYPERTONIA
  18. TORASEMIDE [Suspect]
     Active Substance: TORSEMIDE
     Indication: CARDIAC FAILURE
     Dosage: 40 MG,QD
     Route: 048
     Dates: start: 19980808
  19. ZIENAM [Concomitant]
     Active Substance: CILASTATIN SODIUM\IMIPENEM
     Indication: SEPSIS
     Dosage: 150 MG,UNK
     Route: 042
     Dates: start: 19980828
  20. DOPAMINE [Concomitant]
     Active Substance: DOPAMINE HYDROCHLORIDE
     Indication: CIRCULATORY COLLAPSE
     Dosage: UNK UNK,UNK
     Route: 042
     Dates: start: 19980808, end: 19980808
  21. KALIUMKLORID [Concomitant]
     Dosage: 6 MMOL, QH
     Route: 042
     Dates: start: 19980828, end: 19980828
  22. CAPTOPRIL. [Suspect]
     Active Substance: CAPTOPRIL
     Indication: HYPERTENSION
     Dosage: 2 DF, QD
     Route: 048
     Dates: start: 19980806
  23. PASPERTIN [METOCLOPRAMIDE HYDROCHLORIDE] [Suspect]
     Active Substance: METOCLOPRAMIDE HYDROCHLORIDE
     Dosage: 20 DF,QD
     Route: 048
     Dates: start: 19980814, end: 19980818
  24. PASPERTIN [METOCLOPRAMIDE HYDROCHLORIDE] [Suspect]
     Active Substance: METOCLOPRAMIDE HYDROCHLORIDE
     Dosage: 20 DF,UNK
     Route: 048
     Dates: start: 19980821
  25. ENALAPRIL MALEATE. [Suspect]
     Active Substance: ENALAPRIL MALEATE
     Indication: HYPERTONIA
  26. DIGIMERCK [Suspect]
     Active Substance: DIGITOXIN
     Indication: CARDIAC FAILURE
     Dosage: 1 DF,QD
     Route: 048
     Dates: start: 19980812
  27. DIGOXIN. [Concomitant]
     Active Substance: DIGOXIN
     Indication: CARDIAC FAILURE
     Dosage: .2 MG,UNK
     Route: 048
     Dates: start: 19980812
  28. KALIUMKLORID [Concomitant]
     Dosage: 1 DF, QD
     Route: 048
     Dates: start: 19980818, end: 19980820
  29. KALIUMCHLORID [Concomitant]
     Active Substance: POTASSIUM CHLORIDE
     Dosage: 6 MMOL
     Route: 042
     Dates: start: 19980828, end: 19980828
  30. ACETYLSALICYLIC ACID [Suspect]
     Active Substance: ASPIRIN
     Indication: THROMBOSIS PROPHYLAXIS
     Dosage: 100 MG,UNK
     Route: 048
  31. GLIBENCLAMIDE [Suspect]
     Active Substance: GLYBURIDE
     Dosage: 1 DF,QD
     Route: 048
     Dates: start: 19980820, end: 19980821
  32. PASPERTIN [METOCLOPRAMIDE HYDROCHLORIDE] [Suspect]
     Active Substance: METOCLOPRAMIDE HYDROCHLORIDE
     Dosage: 60 DF,QD
     Route: 048
     Dates: start: 19980820, end: 19980820
  33. XANEF [ENALAPRIL MALEATE] [Suspect]
     Active Substance: ENALAPRIL MALEATE
     Dosage: 5 UNK
     Route: 048
  34. BENZYLPENICILLIN SODIUM [Suspect]
     Active Substance: PENICILLIN G SODIUM
     Indication: PNEUMONIA
     Dosage: UNK UNK,QD
     Route: 042
     Dates: start: 19980821, end: 19980826
  35. GLUCOSE [Concomitant]
     Active Substance: DEXTROSE
     Indication: FLUID REPLACEMENT
     Dosage: 500 ML,QD
     Route: 042
     Dates: start: 19980824, end: 19980824
  36. CLEMASTINE [Concomitant]
     Active Substance: CLEMASTINE
     Dosage: UNK
  37. ZIENAM [Concomitant]
     Active Substance: CILASTATIN SODIUM\IMIPENEM
     Dosage: 500 MG, QD
     Route: 042
  38. POTASSIUM CHLORIDE. [Concomitant]
     Active Substance: POTASSIUM CHLORIDE
     Indication: BLOOD POTASSIUM DECREASED
     Dosage: 2 DF,UNK
     Route: 048
     Dates: start: 19980814, end: 19980814
  39. POTASSIUM CITRATE. [Concomitant]
     Active Substance: POTASSIUM CITRATE
     Indication: BLOOD POTASSIUM DECREASED
     Dosage: 1 DF, QD
     Route: 048
     Dates: start: 19980821, end: 19980821
  40. KALINORM [Concomitant]
     Indication: HYPOKALAEMIA
     Dosage: 1 DF, QD
     Route: 048
     Dates: start: 19980824, end: 19980825
  41. KALIUM-DURILES [Concomitant]
     Active Substance: POTASSIUM
     Indication: HYPOKALAEMIA
     Dosage: 2 DF, TOTAL
     Route: 048
     Dates: start: 19980814, end: 19980814
  42. PASPERTIN [METOCLOPRAMIDE HYDROCHLORIDE] [Suspect]
     Active Substance: METOCLOPRAMIDE HYDROCHLORIDE
     Indication: NAUSEA
     Dosage: 1 DF, QD
     Route: 042
     Dates: start: 19980808, end: 19980826
  43. DILATREND [Suspect]
     Active Substance: CARVEDILOL
     Indication: HYPERTENSION
     Dosage: 13 MG,QD
     Route: 048
     Dates: start: 19980811
  44. TAVEGIL [CLEMASTINE] [Concomitant]
     Active Substance: CLEMASTINE
     Indication: ERYTHEMA
     Dosage: UNK UNK,QD
     Route: 042
     Dates: start: 19980826, end: 19980826
  45. CARBIMAZOL [Concomitant]
     Active Substance: CARBIMAZOLE
     Indication: HYPERTHYROIDISM
     Dosage: 20 MG,UNK
     Route: 048
  46. DEPOT-INSULIN [INSULIN BOVINE] [Concomitant]
     Indication: DIABETES MELLITUS
     Route: 058
  47. INSULIN ZINC SUSPENSION [Concomitant]
     Indication: DIABETES MELLITUS
     Dosage: UNK UNK, QD
     Route: 058
  48. GLIBENCLAMIDE [Suspect]
     Active Substance: GLYBURIDE
     Indication: DIABETES MELLITUS
     Dosage: 1 DF,QD
     Route: 048
     Dates: start: 19880818
  49. XANEF [ENALAPRIL MALEATE] [Suspect]
     Active Substance: ENALAPRIL MALEATE
     Indication: HYPERTENSION
     Dosage: 10 MG, QD
     Route: 048
     Dates: start: 19980811, end: 19980817
  50. ISOKET [Suspect]
     Active Substance: ISOSORBIDE DINITRATE
     Indication: HYPERTENSION
     Dosage: 60 MG,QD
     Route: 048
     Dates: start: 19980818
  51. VANCOMYCIN [Suspect]
     Active Substance: VANCOMYCIN
     Indication: PNEUMONIA
     Dosage: UNK UNK,UNK
     Route: 042
     Dates: start: 19980821, end: 19980826
  52. SORTIS [Concomitant]
     Active Substance: ATORVASTATIN
     Indication: LIPIDS INCREASED
     Dosage: 10 MG,QD
     Route: 048
     Dates: start: 19980826
  53. OMEPRAZOLE. [Concomitant]
     Active Substance: OMEPRAZOLE
     Indication: PROPHYLAXIS AGAINST GASTROINTESTINAL ULCER
     Dosage: 20 MG, QD
     Route: 048
     Dates: start: 19980818
  54. KALIUMKLORID [Concomitant]
     Indication: HYPOKALAEMIA
     Dosage: 3 DF,QD
     Route: 048
     Dates: start: 19980818, end: 19980820
  55. KALINOR [POTASSIUM CHLORIDE] [Concomitant]
     Active Substance: POTASSIUM CHLORIDE
     Indication: HYPOKALAEMIA
     Dosage: 1 DF, TOTAL
     Route: 048
     Dates: start: 19980821, end: 19980821
  56. ENALAPRIL MALEATE. [Suspect]
     Active Substance: ENALAPRIL MALEATE
     Indication: HYPERTENSION
     Dosage: 10 MG,QD
     Route: 048
     Dates: start: 19980811, end: 19980817
  57. AMINOQUINURIDE HYDROCHLORIDE [Concomitant]
     Indication: DIABETES MELLITUS
     Dosage: 8 IU, QD
     Route: 058
  58. POTASSIUM CARBONATE;POTASSIUM CITRATE [Concomitant]
     Indication: BLOOD POTASSIUM DECREASED
     Dosage: 1 DF, QD
     Route: 048
     Dates: start: 19980821, end: 19980821
  59. TUTOFUSIN [CALCIUM CHLORIDE;MAGNESIUM CHLORIDE;POTASSIUM CHLORIDE;SODI [Concomitant]
     Indication: FLUID REPLACEMENT
     Dosage: UNK
     Route: 042
     Dates: start: 19980811, end: 19980817
  60. BEPANTHEN [DEXPANTHENOL] [Concomitant]
     Active Substance: DEXPANTHENOL
     Indication: CIRCULATORY COLLAPSE
     Dosage: UNK
     Route: 042
     Dates: start: 19980808, end: 19980808
  61. LOPIRIN COR [Concomitant]
     Active Substance: CAPTOPRIL
     Indication: HYPERTONIA
     Dosage: 1 DF, QD
     Route: 048

REACTIONS (3)
  - Toxic epidermal necrolysis [Fatal]
  - Circulatory collapse [Fatal]
  - Septic shock [Fatal]

NARRATIVE: CASE EVENT DATE: 19980826
